FAERS Safety Report 5961802-3 (Version None)
Quarter: 2008Q4

REPORT INFORMATION
  Report Type: 
  Country: None (occurrence: None)
  Receive Date: 20081121
  Receipt Date: 20081110
  Transmission Date: 20090506
  Serious: No
  Sender: FDA-Public Use
  Company Number: GR-ELI_LILLY_AND_COMPANY-GR200811001900

PATIENT
  Age: 49 Year
  Sex: Female

DRUGS (4)
  1. OLANZAPINE [Suspect]
     Indication: BIPOLAR I DISORDER
     Dosage: 20 MG, DAILY (1/D)
     Route: 048
     Dates: start: 20080701, end: 20081101
  2. PERPHENAZINE [Concomitant]
     Indication: BIPOLAR I DISORDER
     Dosage: 4 MG, 2/D
     Route: 048
  3. AMITRIPTYLINE HCL [Concomitant]
     Indication: BIPOLAR I DISORDER
     Dosage: 25 MG, 2/D
     Route: 048
  4. XANAX [Concomitant]
     Indication: BIPOLAR I DISORDER
     Dosage: 0.5 MG, 2/D
     Route: 048

REACTIONS (4)
  - ASTHENIA [None]
  - DIZZINESS [None]
  - IRON DEFICIENCY ANAEMIA [None]
  - SERUM FERRITIN DECREASED [None]
